FAERS Safety Report 10080811 (Version 2)
Quarter: 2014Q2

REPORT INFORMATION
  Report Type: Spontaneous
  Country: JP (occurrence: JP)
  Receive Date: 20140416
  Receipt Date: 20140423
  Transmission Date: 20141212
  Serious: Yes (Hospitalization, Other)
  Sender: FDA-Public Use
  Company Number: JP-JNJFOC-20140409167

PATIENT
  Age: 62 Year
  Sex: Female

DRUGS (4)
  1. SIMPONI [Suspect]
     Indication: RHEUMATIC DISORDER
     Route: 058
     Dates: start: 20131113, end: 20140310
  2. RHEUMATREX [Suspect]
     Indication: RHEUMATIC DISORDER
     Route: 048
     Dates: start: 2012
  3. RHEUMATREX [Suspect]
     Indication: RHEUMATIC DISORDER
     Route: 048
  4. PREDONINE [Suspect]
     Indication: RHEUMATIC DISORDER
     Route: 048

REACTIONS (2)
  - Escherichia sepsis [Recovered/Resolved]
  - Pyelonephritis [Unknown]
